FAERS Safety Report 7328416-4 (Version None)
Quarter: 2011Q1

REPORT INFORMATION
  Report Type: 
  Country: None (occurrence: None)
  Receive Date: 20110303
  Receipt Date: 20110223
  Transmission Date: 20110831
  Serious: Yes (Other)
  Sender: FDA-Public Use
  Company Number: US-SANOFI-AVENTIS-2011SA004334

PATIENT
  Age: 77 Year
  Sex: Female

DRUGS (5)
  1. SOLOSTAR [Suspect]
  2. CAFFEINE [Suspect]
     Dosage: DOSE:16 OUNCE
     Route: 048
     Dates: start: 20110114
  3. LANTUS [Suspect]
     Dosage: DOSE:20 UNIT(S)
     Route: 058
  4. LANTUS [Suspect]
     Dosage: DOSE:16 UNIT(S)
     Route: 058
  5. SOLOSTAR [Suspect]

REACTIONS (6)
  - GAIT DISTURBANCE [None]
  - BLOOD GLUCOSE INCREASED [None]
  - SPINAL COLUMN STENOSIS [None]
  - LIMB DISCOMFORT [None]
  - VISUAL ACUITY REDUCED [None]
  - HEADACHE [None]
